FAERS Safety Report 23359554 (Version 7)
Quarter: 2025Q2

REPORT INFORMATION
  Report Type: Report from Study
  Country: JP (occurrence: JP)
  Receive Date: 20240103
  Receipt Date: 20250605
  Transmission Date: 20250716
  Serious: Yes (Hospitalization, Other)
  Sender: AMGEN
  Company Number: JP-Vifor (International) Inc.-VIT-2023-07293

PATIENT
  Age: 74 Year
  Sex: Male
  Weight: 67.4 kg

DRUGS (32)
  1. AVACOPAN [Suspect]
     Active Substance: AVACOPAN
     Indication: Microscopic polyangiitis
     Dosage: 30,MG,BID
     Route: 048
     Dates: start: 20230113
  2. AVACOPAN [Suspect]
     Active Substance: AVACOPAN
     Dosage: 50 MG, QD
     Route: 048
  3. AVACOPAN [Suspect]
     Active Substance: AVACOPAN
     Dosage: 40 MG, QD
     Route: 048
     Dates: start: 20230126
  4. AVACOPAN [Suspect]
     Active Substance: AVACOPAN
     Dosage: 35 MG, QD
     Route: 048
     Dates: start: 20230208
  5. AVACOPAN [Suspect]
     Active Substance: AVACOPAN
     Dosage: 25 MG, QD
     Route: 048
     Dates: start: 20230222
  6. AVACOPAN [Suspect]
     Active Substance: AVACOPAN
     Dosage: 20 MG, QD
     Route: 048
     Dates: start: 20230309
  7. AVACOPAN [Suspect]
     Active Substance: AVACOPAN
     Dosage: 15 MG, QD
     Route: 048
     Dates: start: 20230310, end: 20230410
  8. AVACOPAN [Suspect]
     Active Substance: AVACOPAN
     Dosage: 12.5 MG, QD
     Route: 048
     Dates: start: 20230411, end: 20230608
  9. AVACOPAN [Suspect]
     Active Substance: AVACOPAN
     Dosage: 11 MG, QD
     Route: 048
     Dates: start: 20230706
  10. AVACOPAN [Suspect]
     Active Substance: AVACOPAN
     Dosage: 10 MG, QD
     Route: 048
  11. AVACOPAN [Suspect]
     Active Substance: AVACOPAN
     Dosage: 30 MG, QD
     Route: 048
  12. AVACOPAN [Suspect]
     Active Substance: AVACOPAN
     Dosage: 15 MG, QD
     Route: 048
     Dates: start: 20230315
  13. AVACOPAN [Suspect]
     Active Substance: AVACOPAN
     Dosage: 12.5 MG, QD
     Route: 048
     Dates: start: 20230310
  14. PREDNISOLONE [Concomitant]
     Active Substance: PREDNISOLONE
     Indication: Microscopic polyangiitis
     Dosage: 30,MG,QD
     Route: 048
  15. PREDNISOLONE [Concomitant]
     Active Substance: PREDNISOLONE
     Dosage: 50,MG,QD
     Route: 048
     Dates: start: 20230113, end: 20230119
  16. PREDNISOLONE [Concomitant]
     Active Substance: PREDNISOLONE
     Dosage: 40,MG,QD
     Route: 048
     Dates: start: 20230120
  17. PREDNISOLONE [Concomitant]
     Active Substance: PREDNISOLONE
     Dosage: 35,MG,QD
     Route: 048
     Dates: start: 20230127
  18. PREDNISOLONE [Concomitant]
     Active Substance: PREDNISOLONE
     Dosage: 25,MG,QD
     Route: 048
     Dates: start: 20230209
  19. PREDNISOLONE [Concomitant]
     Active Substance: PREDNISOLONE
     Dosage: 20,MG,QD
     Route: 048
     Dates: start: 20230223
  20. PREDNISOLONE [Concomitant]
     Active Substance: PREDNISOLONE
     Dosage: 15,MG,QD
     Route: 048
     Dates: start: 20230315
  21. PREDNISOLONE [Concomitant]
     Active Substance: PREDNISOLONE
     Dosage: 12.5,MG,QD
     Route: 048
     Dates: start: 20230310
  22. PREDNISOLONE [Concomitant]
     Active Substance: PREDNISOLONE
     Dosage: 11,MG,QD
     Route: 048
     Dates: start: 20230609
  23. PREDNISOLONE [Concomitant]
     Active Substance: PREDNISOLONE
     Dosage: 10,MG,QD
     Route: 048
     Dates: start: 20230707
  24. AZATHIOPRINE [Concomitant]
     Active Substance: AZATHIOPRINE
     Indication: Microscopic polyangiitis
     Dosage: 50,MG,QD
     Route: 048
     Dates: start: 20230223, end: 20230413
  25. LINAGLIPTIN [Concomitant]
     Active Substance: LINAGLIPTIN
     Route: 048
  26. LANSOPRAZOLE [Concomitant]
     Active Substance: LANSOPRAZOLE
     Route: 048
  27. EZETIMIBE [Concomitant]
     Active Substance: EZETIMIBE
     Route: 048
  28. SULFAMETHOXAZOLE\TRIMETHOPRIM [Concomitant]
     Active Substance: SULFAMETHOXAZOLE\TRIMETHOPRIM
     Indication: Antifungal prophylaxis
     Dosage: 500,MG,QD
     Route: 048
     Dates: start: 20230113, end: 20230117
  29. CYCLOPHOSPHAMIDE [Concomitant]
     Active Substance: CYCLOPHOSPHAMIDE
     Indication: Antineutrophil cytoplasmic antibody positive
     Route: 040
     Dates: start: 20230216, end: 20230216
  30. CYCLOPHOSPHAMIDE [Concomitant]
     Active Substance: CYCLOPHOSPHAMIDE
     Route: 040
     Dates: start: 20230324, end: 20230324
  31. CYCLOPHOSPHAMIDE [Concomitant]
     Active Substance: CYCLOPHOSPHAMIDE
     Dosage: 50 MG, QD
     Route: 040
  32. DAPAGLIFLOZIN [Concomitant]
     Active Substance: DAPAGLIFLOZIN
     Route: 048
     Dates: start: 20231006

REACTIONS (7)
  - Liver disorder [Recovered/Resolved]
  - Neutropenia [Recovered/Resolved]
  - Pyrexia [Recovered/Resolved]
  - Cognitive disorder [Not Recovered/Not Resolved]
  - Hyperuricaemia [Not Recovered/Not Resolved]
  - Insomnia [Recovered/Resolved]
  - Pneumonia [Recovered/Resolved]

NARRATIVE: CASE EVENT DATE: 20230222
